FAERS Safety Report 15896695 (Version 3)
Quarter: 2019Q1

REPORT INFORMATION
  Report Type: Spontaneous
  Country: US (occurrence: US)
  Receive Date: 20190131
  Receipt Date: 20190321
  Transmission Date: 20190417
  Serious: Yes (Disabling, Other)
  Sender: FDA-Public Use
  Company Number: US-BAYER-2019-017935

PATIENT
  Age: 39 Year
  Sex: Female
  Weight: 47.17 kg

DRUGS (2)
  1. GADAVIST [Suspect]
     Active Substance: GADOBUTROL
     Indication: BACK PAIN
     Dosage: 10 ML, ONCE
     Route: 042
     Dates: start: 20181213
  2. GADAVIST [Suspect]
     Active Substance: GADOBUTROL
     Indication: NUCLEAR MAGNETIC RESONANCE IMAGING ABDOMINAL

REACTIONS (12)
  - Burning sensation [Not Recovered/Not Resolved]
  - Dysgeusia [Not Recovered/Not Resolved]
  - Myalgia [Not Recovered/Not Resolved]
  - Malaise [Not Recovered/Not Resolved]
  - Nontherapeutic agent urine positive [None]
  - Headache [Not Recovered/Not Resolved]
  - Disturbance in attention [Not Recovered/Not Resolved]
  - Gadolinium deposition disease [None]
  - Abdominal discomfort [Not Recovered/Not Resolved]
  - Contrast media deposition [None]
  - Impaired work ability [Not Recovered/Not Resolved]
  - Nontherapeutic agent urine positive [None]

NARRATIVE: CASE EVENT DATE: 20181213
